FAERS Safety Report 16615939 (Version 1)
Quarter: 2019Q3

REPORT INFORMATION
  Report Type: Spontaneous
  Country: US (occurrence: US)
  Receive Date: 20190723
  Receipt Date: 20190723
  Transmission Date: 20191004
  Serious: Yes (Hospitalization)
  Sender: FDA-Public Use
  Company Number: US-MYLANLABS-2019M1068602

PATIENT
  Age: 20 Year
  Sex: Male

DRUGS (1)
  1. EPINEPHRINE MYLAN [Suspect]
     Active Substance: EPINEPHRINE
     Indication: PRODUCT USED FOR UNKNOWN INDICATION
     Dosage: UNDILUTED EPINEPHRINE (1:1000 DILUTION)
     Route: 042

REACTIONS (3)
  - Product administration error [Recovering/Resolving]
  - Accidental overdose [Recovering/Resolving]
  - Stress cardiomyopathy [Recovering/Resolving]
